FAERS Safety Report 5832410-X (Version None)
Quarter: 2008Q3

REPORT INFORMATION
  Report Type: 
  Country: None (occurrence: None)
  Receive Date: 20080804
  Receipt Date: 20070914
  Transmission Date: 20090109
  Serious: Yes (Hospitalization)
  Sender: FDA-Public Use
  Company Number: HQWYE623522NOV04

PATIENT
  Sex: Male
  Weight: 69 kg

DRUGS (6)
  1. SIROLIMUS [Suspect]
     Indication: PROPHYLAXIS AGAINST TRANSPLANT REJECTION
     Route: 048
     Dates: start: 20040920, end: 20041217
  2. URSODIOL [Concomitant]
     Indication: BILE OUTPUT ABNORMAL
     Route: 048
     Dates: start: 20040203
  3. METOPROLOL SUCCINATE [Concomitant]
     Indication: HYPOTENSION
     Dosage: ^142.5 MG TOTAL DAILY DOSE^
     Route: 048
     Dates: start: 20040311
  4. CELLCEPT [Concomitant]
     Indication: PROPHYLAXIS AGAINST TRANSPLANT REJECTION
     Route: 048
     Dates: start: 20040909
  5. CELLCEPT [Concomitant]
     Dosage: ^2500^
     Dates: start: 20041013, end: 20041101
  6. CELLCEPT [Concomitant]
     Dosage: ^2000^
     Dates: start: 20041102

REACTIONS (2)
  - HEPATITIS C VIRUS TEST [None]
  - LIVER TRANSPLANT REJECTION [None]
